FAERS Safety Report 9450243 (Version 2)
Quarter: 2013Q3

REPORT INFORMATION
  Report Type: Spontaneous
  Country: US (occurrence: US)
  Receive Date: 20130809
  Receipt Date: 20130925
  Transmission Date: 20140515
  Serious: Yes (Other)
  Sender: FDA-Public Use
  Company Number: US-JNJFOC-20130800571

PATIENT
  Age: 58 Year
  Sex: Male
  Weight: 91.63 kg

DRUGS (2)
  1. SANDOZ FENTANYL TRANSDERMAL SYSTEM [Suspect]
     Indication: SPINAL FUSION SURGERY
     Route: 062
  2. PERCOCET [Suspect]
     Indication: PAIN
     Route: 065

REACTIONS (7)
  - Spinal compression fracture [Not Recovered/Not Resolved]
  - Drug ineffective [Unknown]
  - Wrong technique in drug usage process [Unknown]
  - Product quality issue [Unknown]
  - Product quality issue [Unknown]
  - Pain [Not Recovered/Not Resolved]
  - Product quality issue [Unknown]
